FAERS Safety Report 8502263-X (Version None)
Quarter: 2012Q3

REPORT INFORMATION
  Report Type: 
  Country: None (occurrence: None)
  Receive Date: 20120711
  Receipt Date: 20120706
  Transmission Date: 20120928
  Serious: Yes (Other)
  Sender: FDA-Public Use
  Company Number: US-BAYER-2012-068019

PATIENT
  Sex: Female

DRUGS (1)
  1. MIRENA [Suspect]
     Dosage: 20 MCG/24HR, CONT
     Route: 015
     Dates: start: 20120401

REACTIONS (5)
  - RED BLOOD CELL COUNT INCREASED [None]
  - TOOTH ABSCESS [None]
  - BLOOD PRESSURE INCREASED [None]
  - RASH [None]
  - HAEMOGLOBIN INCREASED [None]
